FAERS Safety Report 8564749-1 (Version None)
Quarter: 2012Q3

REPORT INFORMATION
  Report Type: 
  Country: None (occurrence: None)
  Receive Date: 20120803
  Receipt Date: 20120727
  Transmission Date: 20120928
  Serious: Yes (Other)
  Sender: FDA-Public Use
  Company Number: US-MYLANLABS-2012S1015728

PATIENT
  Age: 26 Year
  Sex: Female

DRUGS (1)
  1. AMNESTEEM [Suspect]

REACTIONS (5)
  - ARTHRALGIA [None]
  - MIGRAINE [None]
  - ABDOMINAL PAIN [None]
  - DEAFNESS [None]
  - IRRITABILITY [None]
